FAERS Safety Report 5254394-8 (Version None)
Quarter: 2007Q1

REPORT INFORMATION
  Report Type: 
  Country: None (occurrence: None)
  Receive Date: 20070302
  Receipt Date: 20070222
  Transmission Date: 20070707
  Serious: Yes (Hospitalization)
  Sender: FDA-Public Use
  Company Number: FR-ABBOTT-07P-056-0360043-00

PATIENT
  Sex: Male
  Weight: 70 kg

DRUGS (12)
  1. NORVIR [Suspect]
     Indication: HIV INFECTION
     Route: 048
     Dates: start: 20060907
  2. DIDANOSINE [Suspect]
     Indication: HIV INFECTION
     Route: 048
     Dates: start: 20060907
  3. ABACAVIR [Suspect]
     Indication: HIV INFECTION
     Route: 048
     Dates: start: 20060907
  4. ATAZANAVIR SULFATE [Suspect]
     Indication: HIV INFECTION
     Route: 048
     Dates: start: 20060907
  5. ZIDUVUDINE/LAMIVUDINE/ABACAVIR [Concomitant]
     Indication: HIV INFECTION
     Dates: start: 20020101, end: 20060907
  6. FLECAINIDE ACETATE [Concomitant]
     Indication: ATRIAL FIBRILLATION
     Dates: start: 20040101
  7. FLECAINIDE ACETATE [Concomitant]
     Indication: ARRHYTHMIA
  8. VENLAFAXINE HCL [Concomitant]
     Indication: DEPRESSION
  9. FLUINDIONE [Concomitant]
     Indication: ATRIAL FIBRILLATION
     Dates: start: 20040101
  10. FLUINDIONE [Concomitant]
     Indication: ARRHYTHMIA
  11. CYAMEMAZINE [Concomitant]
     Indication: DEPRESSION
  12. ZOPICLONE [Concomitant]
     Indication: DEPRESSION

REACTIONS (6)
  - ANAEMIA [None]
  - ANAEMIA FOLATE DEFICIENCY [None]
  - BLOOD LACTATE DEHYDROGENASE INCREASED [None]
  - HAEMOLYSIS [None]
  - LYMPHADENITIS [None]
  - MYALGIA [None]
